FAERS Safety Report 7437908-9 (Version None)
Quarter: 2011Q2

REPORT INFORMATION
  Report Type: 
  Country: None (occurrence: None)
  Receive Date: 20110426
  Receipt Date: 20110418
  Transmission Date: 20111010
  Serious: Yes (Life-Threatening, Hospitalization)
  Sender: FDA-Public Use
  Company Number: B0715080A

PATIENT
  Age: 40 Year
  Sex: Female

DRUGS (1)
  1. ZINACEF [Suspect]
     Indication: ABDOMINAL PAIN
     Dates: start: 20101115, end: 20101124

REACTIONS (4)
  - ANAPHYLACTIC SHOCK [None]
  - CARDIOVASCULAR DISORDER [None]
  - CIRCULATORY COLLAPSE [None]
  - DYSPHAGIA [None]
